FAERS Safety Report 5927520-2 (Version None)
Quarter: 2008Q4

REPORT INFORMATION
  Report Type: 
  Country: None (occurrence: None)
  Receive Date: 20081023
  Receipt Date: 20081015
  Transmission Date: 20090506
  Serious: Yes (Hospitalization, Other)
  Sender: FDA-Public Use
  Company Number: KR-ROCHE-583614

PATIENT
  Sex: Female
  Weight: 48 kg

DRUGS (13)
  1. CAPECITABINE [Suspect]
     Indication: GASTRIC CANCER
     Dosage: FREQUENCY REPORTED AS D1-14Q3W, UNIT REPORTED AS : 3000 MG
     Route: 048
     Dates: start: 20080610
  2. BLINDED BEVACIZUMAB [Suspect]
     Indication: GASTRIC CANCER
     Dosage: FREQUENCY REPORTED: D1Q3W, UNITS: 401 MG FORM : INFUSION
     Route: 042
     Dates: start: 20080610
  3. CISPLATIN [Suspect]
     Indication: GASTRIC CANCER
     Dosage: FORM: INFUSION, UNITS REPORTED AS- 123 MG
     Route: 042
     Dates: start: 20080610
  4. TRAMADOL HCL [Concomitant]
     Dates: start: 20081002, end: 20081002
  5. MORPHINE SULFATE INJ [Concomitant]
     Dates: start: 20081002, end: 20081005
  6. CHLORPHENIRAMINE MALEATE [Concomitant]
     Dates: start: 20081002, end: 20081004
  7. PANTOPRAZOLE SODIUM [Concomitant]
     Dates: start: 20081002, end: 20081003
  8. METRONIDAZOLE [Concomitant]
     Dates: start: 20081004, end: 20081007
  9. CEFTRIAXONE [Concomitant]
     Dates: start: 20081004, end: 20081007
  10. PROPACETAMOL HCL [Concomitant]
     Dates: start: 20081004, end: 20081004
  11. COMBIFLEX [Concomitant]
     Dates: start: 20081003, end: 20081008
  12. HYOSCINE HBR HYT [Concomitant]
     Dates: start: 20081004, end: 20081004
  13. FUROSEMIDE [Concomitant]
     Dates: start: 20081004, end: 20081004

REACTIONS (2)
  - ABDOMINAL PAIN [None]
  - LARGE INTESTINAL ULCER [None]
